FAERS Safety Report 5404468-3 (Version None)
Quarter: 2007Q3

REPORT INFORMATION
  Report Type: 
  Country: None (occurrence: None)
  Receive Date: 20070713
  Receipt Date: 20070516
  Transmission Date: 20080115
  Serious: Yes (Hospitalization)
  Sender: FDA-Public Use
  Company Number: US-JNJFOC-20061202781

PATIENT
  Age: 32 Year
  Sex: Female
  Weight: 74.3899 kg

DRUGS (2)
  1. ORTHO EVRA [Suspect]
     Indication: DRUG USE FOR UNKNOWN INDICATION
     Dosage: TRANSDERMAL
     Route: 062
     Dates: start: 20040801, end: 20041129
  2. ADVAIR DISKUS 100/50 [Concomitant]

REACTIONS (1)
  - PULMONARY EMBOLISM [None]
